FAERS Safety Report 10477480 (Version 2)
Quarter: 2014Q4

REPORT INFORMATION
  Report Type: Spontaneous
  Country: DE (occurrence: DE)
  Receive Date: 20140926
  Receipt Date: 20141020
  Transmission Date: 20150528
  Serious: Yes (Other)
  Sender: FDA-Public Use
  Company Number: DE-009507513-1409DEU012453

PATIENT
  Age: 77 Year
  Sex: Male
  Weight: 78 kg

DRUGS (6)
  1. JANUVIA [Suspect]
     Active Substance: SITAGLIPTIN PHOSPHATE
     Indication: DIABETES MELLITUS
     Dosage: 100 MG, QD
     Route: 048
     Dates: start: 201207, end: 201212
  2. MARCUMAR [Concomitant]
     Active Substance: PHENPROCOUMON
  3. AMLODIPINE [Concomitant]
     Active Substance: AMLODIPINE BESYLATE
  4. EXFORGE [Concomitant]
     Active Substance: AMLODIPINE BESYLATE\VALSARTAN
  5. BISOPROLOL [Concomitant]
     Active Substance: BISOPROLOL
  6. DIOVAN [Concomitant]
     Active Substance: VALSARTAN

REACTIONS (6)
  - Autoimmune pancreatitis [Unknown]
  - Lymphadenitis [Unknown]
  - Neoplasm [Unknown]
  - Pancreatic neoplasm [Unknown]
  - Autoimmune disorder [Unknown]
  - Lymphoid tissue hyperplasia [Unknown]

NARRATIVE: CASE EVENT DATE: 201309
